FAERS Safety Report 4408739-9 (Version None)
Quarter: 2004Q3

REPORT INFORMATION
  Report Type: 
  Country: None (occurrence: None)
  Receive Date: 20040727
  Receipt Date: 20040723
  Transmission Date: 20050211
  Serious: Yes (Disabling)
  Sender: FDA-Public Use
  Company Number: PHBS2004ES09755

PATIENT
  Age: 65 Year
  Sex: Female

DRUGS (2)
  1. TRILEPTAL [Suspect]
     Indication: CYCLOTHYMIC DISORDER
     Dosage: 600 MG, BID
     Route: 048
     Dates: start: 20040401, end: 20040601
  2. DIAZEPAM [Concomitant]
     Dosage: 5 MG, TID

REACTIONS (2)
  - NAIL INFECTION [None]
  - ONYCHOMADESIS [None]
